FAERS Safety Report 10142304 (Version 1)
Quarter: 2014Q2

REPORT INFORMATION
  Report Type: Spontaneous
  Country: FR (occurrence: FR)
  Receive Date: 20140429
  Receipt Date: 20140429
  Transmission Date: 20141212
  Serious: Yes (Hospitalization)
  Sender: FDA-Public Use
  Company Number: PHHY2014FR050300

PATIENT
  Age: 58 Year
  Sex: Male

DRUGS (4)
  1. LESCOL [Suspect]
     Indication: HYPERCHOLESTEROLAEMIA
     Dosage: 80 MG, QD
     Route: 048
     Dates: end: 20071113
  2. DOXORUBICIN EBEWE [Suspect]
     Indication: HEPATOCELLULAR CARCINOMA
     Dosage: 50 ML, ONCE/SINGLE
     Route: 013
     Dates: start: 20071105
  3. LIPIODOL ULTRA-FLUIDE [Suspect]
     Indication: THERAPEUTIC EMBOLISATION
     Dosage: 10 ML, ONCE/SINGLE
     Route: 013
     Dates: start: 20071105
  4. AUGMENTIN [Suspect]
     Indication: PRODUCT USED FOR UNKNOWN INDICATION
     Dosage: 1 G, TID
     Route: 065
     Dates: start: 20071108, end: 20071116

REACTIONS (4)
  - Neutropenia [Recovered/Resolved]
  - Rhabdomyolysis [Recovered/Resolved]
  - Myalgia [Recovered/Resolved]
  - Hepatitis [Recovered/Resolved]
